FAERS Safety Report 7559295-8 (Version None)
Quarter: 2011Q2

REPORT INFORMATION
  Report Type: 
  Country: None (occurrence: None)
  Receive Date: 20110613
  Receipt Date: 20110531
  Transmission Date: 20111010
  Serious: Yes (Disabling, Other)
  Sender: FDA-Public Use
  Company Number: 2011MA006594

PATIENT
  Sex: Female

DRUGS (2)
  1. METOCLOPRAMIDE TABLETS USP, 10 MG (PUREPAC) [Suspect]
     Indication: DYSPEPSIA
     Dosage: 10 MG
     Dates: start: 20041201, end: 20110201
  2. METOCLOPRAMIDE TABLETS USP, 10 MG (PUREPAC) [Suspect]
     Indication: ABDOMINAL PAIN
     Dosage: 10 MG
     Dates: start: 20041201, end: 20110201

REACTIONS (8)
  - MULTIPLE INJURIES [None]
  - ECONOMIC PROBLEM [None]
  - DEFORMITY [None]
  - TARDIVE DYSKINESIA [None]
  - ACTIVITIES OF DAILY LIVING IMPAIRED [None]
  - PAIN [None]
  - NERVOUS SYSTEM DISORDER [None]
  - EXTRAPYRAMIDAL DISORDER [None]
